FAERS Safety Report 9411689 (Version 3)
Quarter: 2013Q3

REPORT INFORMATION
  Report Type: Spontaneous
  Country: IT (occurrence: IT)
  Receive Date: 20130722
  Receipt Date: 20130916
  Transmission Date: 20140515
  Serious: Yes (Hospitalization)
  Sender: FDA-Public Use
  Company Number: IT-JNJFOC-20130708079

PATIENT
  Age: 12 Year
  Sex: Male
  Weight: 67 kg

DRUGS (2)
  1. RISPERDAL [Suspect]
     Indication: ASPERGER^S DISORDER
     Route: 065
     Dates: start: 20130710, end: 20130716
  2. RISPERDAL [Suspect]
     Indication: ASPERGER^S DISORDER
     Route: 065

REACTIONS (5)
  - Wrong drug administered [Unknown]
  - Blood pressure diastolic decreased [Unknown]
  - Dyskinesia [Recovered/Resolved]
  - Dystonia [Recovered/Resolved]
  - Sluggishness [Unknown]
